FAERS Safety Report 11587969 (Version 1)
Quarter: 2015Q4

REPORT INFORMATION
  Report Type: Spontaneous
  Country: FI (occurrence: FI)
  Receive Date: 20151002
  Receipt Date: 20151002
  Transmission Date: 20160304
  Serious: Yes (Other)
  Sender: FDA-Public Use
  Company Number: FI-ASTRAZENECA-2015SE93325

PATIENT
  Age: 39 Year
  Sex: Female

DRUGS (3)
  1. SEROQUEL [Suspect]
     Active Substance: QUETIAPINE FUMARATE
     Route: 048
  2. SERONIL [Suspect]
     Active Substance: FLUOXETINE HYDROCHLORIDE
     Dosage: 10-20 MG, UNKNOWN FREQUENCY
     Route: 048
  3. ANAFRANIL [Suspect]
     Active Substance: CLOMIPRAMINE HYDROCHLORIDE
     Route: 048

REACTIONS (5)
  - Placental infarction [Unknown]
  - Pre-eclampsia [Unknown]
  - Proteinuria [Unknown]
  - Blood pressure increased [Unknown]
  - Exposure during pregnancy [Unknown]
